FAERS Safety Report 21835611 (Version 4)
Quarter: 2023Q1

REPORT INFORMATION
  Report Type: Report from Study
  Country: US (occurrence: US)
  Receive Date: 20230109
  Receipt Date: 20230323
  Transmission Date: 20230418
  Serious: No
  Sender: FDA-Public Use
  Company Number: US-ABBVIE-4258330

PATIENT
  Age: 55 Year
  Sex: Male

DRUGS (2)
  1. HUMIRA [Suspect]
     Active Substance: ADALIMUMAB
     Indication: Ankylosing spondylitis
     Dosage: CITRATE FREE?FORM STRENGTH: 40 MG
     Route: 058
     Dates: start: 20221130
  2. HUMIRA [Suspect]
     Active Substance: ADALIMUMAB
     Dosage: CITRATE FREE?FORM STRENGTH: 40 MG
     Route: 058
     Dates: start: 20220922

REACTIONS (21)
  - Abnormal faeces [Unknown]
  - Pain in extremity [Recovering/Resolving]
  - Sinusitis [Not Recovered/Not Resolved]
  - Ankylosing spondylitis [Unknown]
  - Headache [Not Recovered/Not Resolved]
  - Mass [Not Recovered/Not Resolved]
  - Arthralgia [Recovering/Resolving]
  - Drug ineffective [Unknown]
  - Joint swelling [Recovering/Resolving]
  - Therapeutic response shortened [Unknown]
  - Peripheral swelling [Recovering/Resolving]
  - COVID-19 [Not Recovered/Not Resolved]
  - Nasal discomfort [Recovering/Resolving]
  - Anger [Not Recovered/Not Resolved]
  - Alopecia [Not Recovered/Not Resolved]
  - Frustration tolerance decreased [Not Recovered/Not Resolved]
  - SARS-CoV-2 test positive [Not Recovered/Not Resolved]
  - Paranasal sinus discomfort [Not Recovered/Not Resolved]
  - Head discomfort [Recovering/Resolving]
  - Paraesthesia [Not Recovered/Not Resolved]
  - Neck pain [Not Recovered/Not Resolved]

NARRATIVE: CASE EVENT DATE: 20221029
